FAERS Safety Report 5145076-1 (Version None)
Quarter: 2006Q4

REPORT INFORMATION
  Report Type: 
  Country: None (occurrence: None)
  Receive Date: 20061107
  Receipt Date: 20061101
  Transmission Date: 20070319
  Serious: Yes (Hospitalization)
  Sender: FDA-Public Use
  Company Number: US-BRISTOL-MYERS SQUIBB COMPANY-13563051

PATIENT
  Age: 26 Year
  Sex: Female
  Weight: 91 kg

DRUGS (2)
  1. STADOL [Suspect]
     Indication: LABOUR PAIN
     Route: 042
     Dates: start: 20051215, end: 20051215
  2. ANESTHESIA [Concomitant]
     Indication: LABOUR PAIN
     Route: 008

REACTIONS (3)
  - LABILE BLOOD PRESSURE [None]
  - NEONATAL DISORDER [None]
  - PREGNANCY [None]
